FAERS Safety Report 4648837-8 (Version None)
Quarter: 2005Q2

REPORT INFORMATION
  Report Type: 
  Country: None (occurrence: None)
  Receive Date: 20050429
  Receipt Date: 20050204
  Transmission Date: 20051028
  Serious: Yes (Hospitalization)
  Sender: FDA-Public Use
  Company Number: US-MERCK-0502USA00556

PATIENT
  Age: 76 Year
  Sex: Male
  Weight: 84 kg

DRUGS (3)
  1. VIOXX [Suspect]
     Indication: PAIN
     Route: 048
     Dates: start: 20030210, end: 20041001
  2. DIOVAN [Concomitant]
     Route: 065
     Dates: start: 19980101
  3. ZOCOR [Concomitant]
     Route: 048
     Dates: start: 19980101

REACTIONS (4)
  - CARDIAC DISORDER [None]
  - DYSPEPSIA [None]
  - MYOCARDIAL INFARCTION [None]
  - ULCER [None]
